FAERS Safety Report 8914992 (Version 1)
Quarter: 2012Q4

REPORT INFORMATION
  Report Type: 
  Country: US (occurrence: US)
  Receive Date: 20121119
  Receipt Date: 20121119
  Transmission Date: 20130627
  Serious: Yes (Hospitalization)
  Sender: FDA-Public Use
  Company Number: US-ELI_LILLY_AND_COMPANY-US201211002845

PATIENT
  Sex: Female

DRUGS (3)
  1. ADCIRCA [Suspect]
     Indication: COR PULMONALE CHRONIC
     Dosage: 20 mg, bid
  2. FUROSEMIDE [Concomitant]
  3. POTASSIUM [Concomitant]

REACTIONS (2)
  - Muscle spasms [Unknown]
  - Haematochezia [Unknown]
